FAERS Safety Report 8819740 (Version 2)
Quarter: 2014Q3

REPORT INFORMATION
  Report Type: Report from Study
  Country: US (occurrence: US)
  Receive Date: 20121001
  Receipt Date: 20140910
  Transmission Date: 20150326
  Serious: Yes (Death, Other)
  Sender: FDA-Public Use
  Company Number: US-ROCHE-1130228

PATIENT
  Sex: Female

DRUGS (10)
  1. ADRIAMYCIN [Concomitant]
     Active Substance: DOXORUBICIN HYDROCHLORIDE
  2. NAVELBINE [Suspect]
     Active Substance: VINORELBINE TARTRATE
     Indication: PRODUCT USED FOR UNKNOWN INDICATION
     Route: 042
     Dates: start: 19981203
  3. TAXOL [Concomitant]
     Active Substance: PACLITAXEL
     Route: 042
  4. DECADRON [Concomitant]
     Active Substance: DEXAMETHASONE
     Route: 042
  5. NAVELBINE [Suspect]
     Active Substance: VINORELBINE TARTRATE
     Route: 042
     Dates: start: 19981209
  6. HERCEPTIN [Suspect]
     Active Substance: TRASTUZUMAB
     Indication: BREAST CANCER
     Route: 042
     Dates: start: 19981125
  7. KYTRIL [Concomitant]
     Active Substance: GRANISETRON HYDROCHLORIDE
     Route: 042
  8. CYTOXAN [Concomitant]
     Active Substance: CYCLOPHOSPHAMIDE
  9. METHOTREXATE [Concomitant]
     Active Substance: METHOTREXATE
  10. FLUOROURACIL. [Concomitant]
     Active Substance: FLUOROURACIL

REACTIONS (20)
  - Neutropenia [Unknown]
  - Asthenia [Unknown]
  - Nausea [Recovered/Resolved]
  - Pneumonia [Unknown]
  - Chest pain [Unknown]
  - Constipation [Unknown]
  - Muscular weakness [Unknown]
  - Scab [Unknown]
  - Death [Fatal]
  - Atrial fibrillation [Recovered/Resolved]
  - Neuropathy peripheral [Unknown]
  - Lung infiltration [Unknown]
  - Cough [Recovering/Resolving]
  - Vomiting [Recovered/Resolved]
  - Dyspnoea [Unknown]
  - Chest discomfort [Unknown]
  - Pain [Unknown]
  - Erythema [Unknown]
  - Metastases to lung [Unknown]
  - Fatigue [Unknown]
